FAERS Safety Report 6057352-9 (Version None)
Quarter: 2009Q1

REPORT INFORMATION
  Report Type: 
  Country: None (occurrence: None)
  Receive Date: 20090129
  Receipt Date: 20081124
  Transmission Date: 20090719
  Serious: No
  Sender: FDA-Public Use
  Company Number: A0757861A

PATIENT
  Age: 54 Year
  Sex: Female

DRUGS (2)
  1. WELLBUTRIN [Suspect]
     Indication: DEPRESSION
     Dosage: 150MG PER DAY
     Route: 048
     Dates: start: 20081001, end: 20081101
  2. UNKNOWN MEDICATION [Concomitant]
     Indication: THYROID DISORDER

REACTIONS (2)
  - FATIGUE [None]
  - HEADACHE [None]
